FAERS Safety Report 11777001 (Version 3)
Quarter: 2015Q4

REPORT INFORMATION
  Report Type: Spontaneous
  Country: US (occurrence: US)
  Receive Date: 20151125
  Receipt Date: 20151214
  Transmission Date: 20160304
  Serious: Yes (Other)
  Sender: FDA-Public Use
  Company Number: US-BAYER-2015-472455

PATIENT
  Age: 22 Year
  Sex: Female

DRUGS (1)
  1. MIRENA [Suspect]
     Active Substance: LEVONORGESTREL
     Indication: CONTRACEPTION
     Dosage: 20 MCG/24HR, CONT
     Route: 015
     Dates: start: 201506

REACTIONS (10)
  - Pain [Recovered/Resolved]
  - Abdominal pain lower [Not Recovered/Not Resolved]
  - Breast enlargement [None]
  - Menstruation delayed [Not Recovered/Not Resolved]
  - Device dislocation [None]
  - Fall [Not Recovered/Not Resolved]
  - Feeling abnormal [None]
  - Breast pain [Not Recovered/Not Resolved]
  - Breast tenderness [Not Recovered/Not Resolved]
  - Vaginal haemorrhage [Recovered/Resolved]

NARRATIVE: CASE EVENT DATE: 2015
